FAERS Safety Report 10476031 (Version 1)
Quarter: 2014Q3

REPORT INFORMATION
  Report Type: Spontaneous
  Country: SE (occurrence: SE)
  Receive Date: 20140925
  Receipt Date: 20140925
  Transmission Date: 20150326
  Serious: Yes (Other)
  Sender: FDA-Public Use
  Company Number: PHHY2014SE122391

PATIENT
  Sex: Female

DRUGS (1)
  1. VOLTAREN [Suspect]
     Active Substance: DICLOFENAC SODIUM
     Dosage: UNK UKN, UNK
     Dates: end: 20140115

REACTIONS (3)
  - Pain [Unknown]
  - Hemiparesis [Unknown]
  - Balance disorder [Unknown]
